APPROVED DRUG PRODUCT: HYDROCHLOROTHIAZIDE
Active Ingredient: HYDROCHLOROTHIAZIDE
Strength: 25MG
Dosage Form/Route: TABLET;ORAL
Application: A040702 | Product #001 | TE Code: AB
Applicant: LEADING PHARMA LLC
Approved: Mar 16, 2007 | RLD: No | RS: No | Type: RX